FAERS Safety Report 6770846-3 (Version None)
Quarter: 2010Q2

REPORT INFORMATION
  Report Type: 
  Country: None (occurrence: None)
  Receive Date: 20100614
  Receipt Date: 20100614
  Transmission Date: 20101027
  Serious: Yes (Hospitalization)
  Sender: FDA-Public Use
  Company Number: None

PATIENT
  Sex: Female
  Weight: 69 kg

DRUGS (8)
  1. CYCLOPHOSPHAMIDE [Suspect]
     Dosage: 1350 MG
     Dates: end: 20100512
  2. FLUDARABINE PHOSPHATE [Suspect]
     Dosage: 135 MG
     Dates: end: 20100512
  3. RITUXIMAB (MOAB C2B8 ANTI CD20, CHIMERIC) [Suspect]
     Dosage: 640 MG
     Dates: end: 20100512
  4. BACTRIM [Concomitant]
  5. MEROPENEM [Concomitant]
  6. VANCOMYCIN [Concomitant]
  7. VALTREX [Concomitant]
  8. MOXIFLOXACIN [Concomitant]

REACTIONS (7)
  - ALANINE AMINOTRANSFERASE INCREASED [None]
  - ASPARTATE AMINOTRANSFERASE INCREASED [None]
  - BACTERIAL TEST POSITIVE [None]
  - HEPATIC STEATOSIS [None]
  - NO THERAPEUTIC RESPONSE [None]
  - PYREXIA [None]
  - RASH MACULO-PAPULAR [None]
